FAERS Safety Report 16956331 (Version 2)
Quarter: 2019Q4

REPORT INFORMATION
  Report Type: Spontaneous
  Country: DE (occurrence: DE)
  Receive Date: 20191024
  Receipt Date: 20191226
  Transmission Date: 20200122
  Serious: Yes (Other)
  Sender: FDA-Public Use
  Company Number: DE-PFIZER INC-2019412064

PATIENT
  Age: 66 Year
  Sex: Female
  Weight: 82 kg

DRUGS (3)
  1. LAXANS AL [Concomitant]
     Dosage: 5 MG, DAILY
  2. NORVASC [Suspect]
     Active Substance: AMLODIPINE BESYLATE
     Indication: HYPERTENSION
     Dosage: 5 MG, 1X/DAY
     Dates: end: 20190924
  3. L-THYROXIN HENNING [Concomitant]
     Active Substance: LEVOTHYROXINE SODIUM
     Dosage: 50 UG, DAILY

REACTIONS (9)
  - Tinnitus [Recovered/Resolved]
  - Tongue discomfort [Recovered/Resolved]
  - Nausea [Unknown]
  - Headache [Unknown]
  - Product complaint [Unknown]
  - Peripheral swelling [Recovered/Resolved]
  - Pharyngeal swelling [Unknown]
  - Pharyngeal hypoaesthesia [Unknown]
  - Cough [Unknown]

NARRATIVE: CASE EVENT DATE: 20190921
